FAERS Safety Report 18153170 (Version 2)
Quarter: 2020Q3

REPORT INFORMATION
  Report Type: Spontaneous
  Country: US (occurrence: US)
  Receive Date: 20200815
  Receipt Date: 20200930
  Transmission Date: 20201103
  Serious: No
  Sender: FDA-Public Use
  Company Number: US-ASTRAZENECA-2020SE95678

PATIENT
  Sex: Male
  Weight: 121.1 kg

DRUGS (2)
  1. PULMICORT FLEXHALER [Suspect]
     Active Substance: BUDESONIDE
     Indication: STREPTOCOCCAL INFECTION
     Route: 055
     Dates: start: 20200721
  2. SPRYCEL [Concomitant]
     Active Substance: DASATINIB
     Indication: LEUKAEMIA
     Route: 048

REACTIONS (5)
  - Asthma [Unknown]
  - Device malfunction [Unknown]
  - Product use in unapproved indication [Not Recovered/Not Resolved]
  - Wrong technique in device usage process [Unknown]
  - Intentional device misuse [Not Recovered/Not Resolved]
